FAERS Safety Report 26093544 (Version 1)
Quarter: 2025Q4

REPORT INFORMATION
  Report Type: Spontaneous
  Country: JP (occurrence: JP)
  Receive Date: 20251126
  Receipt Date: 20251126
  Transmission Date: 20260117
  Serious: Yes (Hospitalization)
  Sender: ELI LILLY AND COMPANY
  Company Number: JP-ELI_LILLY_AND_COMPANY-JP202511025271

PATIENT
  Sex: Male

DRUGS (1)
  1. MOUNJARO [Suspect]
     Active Substance: TIRZEPATIDE
     Indication: Diabetes prophylaxis
     Dosage: UNK
     Route: 058

REACTIONS (4)
  - Facial paralysis [Not Recovered/Not Resolved]
  - Neuralgia [Recovered/Resolved]
  - Occipital neuralgia [Unknown]
  - Off label use [Unknown]
